FAERS Safety Report 8819077 (Version 1)
Quarter: 2012Q4

REPORT INFORMATION
  Report Type: Spontaneous
  Country: US (occurrence: None)
  Receive Date: 20121004
  Receipt Date: 20121004
  Transmission Date: 20130627
  Serious: Yes (Hospitalization)
  Sender: FDA-Public Use
  Company Number: None

PATIENT
  Age: 46 Year
  Sex: Male
  Weight: 84.8 kg

DRUGS (9)
  1. OFATUMUMAB [Suspect]
     Indication: DIFFUSE LARGE B-CELL LYMPHOMA REFRACTORY
     Route: 042
     Dates: start: 20120901
  2. ACYLOVIR [Concomitant]
  3. FLUCONAZOLE [Concomitant]
  4. LANSOPRAZOLE [Concomitant]
  5. MULTIVITAMIN [Concomitant]
  6. ZOLPIDEM(AMBIEN) [Concomitant]
  7. ZOFRAN [Concomitant]
  8. PROCHLORPERAZINE [Concomitant]
  9. SUCRALFATE [Concomitant]

REACTIONS (8)
  - Pyrexia [None]
  - Scrotal pain [None]
  - Scrotal disorder [None]
  - Lymphadenopathy [None]
  - Scrotal ulcer [None]
  - White blood cell count decreased [None]
  - Respiratory syncytial virus infection [None]
  - Febrile neutropenia [None]
